FAERS Safety Report 6206802-3 (Version None)
Quarter: 2009Q2

REPORT INFORMATION
  Report Type: 
  Country: None (occurrence: None)
  Receive Date: 20090528
  Receipt Date: 20090521
  Transmission Date: 20091009
  Serious: Yes (Other)
  Sender: FDA-Public Use
  Company Number: BR-JNJFOC-20090506030

PATIENT
  Age: 83 Year
  Sex: Male
  Weight: 51 kg

DRUGS (8)
  1. IMOSEC [Suspect]
     Route: 065
  2. IMOSEC [Suspect]
     Indication: DIARRHOEA
     Dosage: THIS WAS REDUCED TO 1/2 TABLET DAILY, AND AGAIN INCREASED TO 1 TABLET DAILY SINCE A YEAR AGO
     Route: 065
  3. ARADOIS [Concomitant]
     Indication: HYPERTENSION
  4. NIMODIPINE [Concomitant]
     Indication: HYPERTENSION
  5. TARGIFOR [Concomitant]
     Indication: INCREASED APPETITE
     Dosage: 1/3 TABLET
  6. EXPEC [Concomitant]
     Indication: COUGH
  7. ZOLPIDEM [Concomitant]
     Indication: SLEEP DISORDER THERAPY
  8. BETAMETHASONE D-CHLORPHENIRAMINE MALEATE [Concomitant]
     Indication: ANTIALLERGIC THERAPY

REACTIONS (8)
  - AORTIC ANEURYSM [None]
  - CEREBROVASCULAR ACCIDENT [None]
  - DRUG INEFFECTIVE [None]
  - INFLUENZA [None]
  - RENAL DISORDER [None]
  - TONGUE NEOPLASM MALIGNANT STAGE UNSPECIFIED [None]
  - TRANSIENT ISCHAEMIC ATTACK [None]
  - WRONG TECHNIQUE IN DRUG USAGE PROCESS [None]
